FAERS Safety Report 6620737-3 (Version None)
Quarter: 2010Q1

REPORT INFORMATION
  Report Type: 
  Country: None (occurrence: None)
  Receive Date: 20100309
  Receipt Date: 20090924
  Transmission Date: 20100710
  Serious: Yes (Death)
  Sender: FDA-Public Use
  Company Number: US-PFIZER INC-2009246020

PATIENT
  Age: 76 Year
  Sex: Female
  Weight: 91 kg

DRUGS (10)
  1. ARIMIDEX [Suspect]
     Indication: BREAST CANCER
     Dosage: 1 MG, 1X/DAY
     Route: 048
     Dates: start: 20060118
  2. NORVASC [Suspect]
     Dosage: 10 MG, 1X/DAY
  3. GLIBENCLAMIDE [Suspect]
     Dosage: 1.5 MG, 1X/DAY, Q.A.M.
  4. METFORMIN HCL [Suspect]
     Dosage: 850 MG, 2X/DAY
  5. HYDROCHLOROTHIAZIDE [Suspect]
     Dosage: 12.5 MG, 1X/DAY
  6. ASPIRIN [Suspect]
     Dosage: 81 MG, 1X/DAY
  7. CALCIUM WITH VITAMIN D [Suspect]
     Indication: OSTEOPOROSIS
     Dosage: CALCIUM 500MG WITH VITAMIN D, 1 TABLET; 3X/DAY
     Route: 048
  8. COZAAR [Suspect]
     Dosage: 100 MG, 1X/DAY
  9. SYNTHROID [Suspect]
     Dosage: 50 UG 5 DAYS X/WEEK, 25 UG 2 DAYS X/WEEK
  10. BONIVA [Suspect]
     Indication: OSTEOPOROSIS
     Dosage: 150 MG, MONTHLY
     Dates: start: 20060103

REACTIONS (1)
  - DEATH [None]
